FAERS Safety Report 5189229-5 (Version None)
Quarter: 2006Q4

REPORT INFORMATION
  Report Type: 
  Country: None (occurrence: None)
  Receive Date: 20061218
  Receipt Date: 20061207
  Transmission Date: 20070319
  Serious: Yes (Other)
  Sender: FDA-Public Use
  Company Number: 430051K06USA

PATIENT
  Age: 47 Year
  Sex: Female
  Weight: 59.42 kg

DRUGS (1)
  1. NOVANTRONE [Suspect]
     Indication: MULTIPLE SCLEROSIS
     Dosage: 12 MG/M2, ONCE
     Dates: start: 20051101, end: 20051101

REACTIONS (1)
  - EJECTION FRACTION DECREASED [None]
